FAERS Safety Report 11522718 (Version 1)
Quarter: 2015Q3

REPORT INFORMATION
  Report Type: Spontaneous
  Country: US (occurrence: US)
  Receive Date: 20150918
  Receipt Date: 20150918
  Transmission Date: 20151125
  Serious: No
  Sender: FDA-Public Use
  Company Number: US-ROCHE-737663

PATIENT
  Sex: Male
  Weight: 97.1 kg

DRUGS (2)
  1. COPEGUS [Suspect]
     Active Substance: RIBAVIRIN
     Indication: HEPATITIS C
     Dosage: OTHER INDICATION: HAV
     Route: 048
  2. PEGASYS [Suspect]
     Active Substance: PEGINTERFERON ALFA-2A
     Indication: HEPATITIS C
     Dosage: OTHER INDICATION: HAV
     Route: 058

REACTIONS (2)
  - Dental caries [Unknown]
  - Device failure [Unknown]

NARRATIVE: CASE EVENT DATE: 2010
